FAERS Safety Report 5901162-7 (Version None)
Quarter: 2008Q3

REPORT INFORMATION
  Report Type: 
  Country: None (occurrence: None)
  Receive Date: 20080929
  Receipt Date: 20080922
  Transmission Date: 20090109
  Serious: Yes (Hospitalization)
  Sender: FDA-Public Use
  Company Number: GB-ROCHE-587529

PATIENT
  Sex: Male
  Weight: 108.4 kg

DRUGS (3)
  1. ORLISTAT [Suspect]
     Indication: OBESITY
     Route: 048
     Dates: start: 20080904
  2. ATENOLOL [Concomitant]
     Indication: ANGINA PECTORIS
     Route: 048
     Dates: start: 19970101
  3. SIMVASTATIN [Concomitant]
     Route: 048
     Dates: start: 20000101

REACTIONS (1)
  - PULMONARY THROMBOSIS [None]
